FAERS Safety Report 5277705-6 (Version None)
Quarter: 2007Q1

REPORT INFORMATION
  Report Type: 
  Country: None (occurrence: None)
  Receive Date: 20070327
  Receipt Date: 20070315
  Transmission Date: 20070707
  Serious: Yes (Other)
  Sender: FDA-Public Use
  Company Number: US-PFIZER INC-2006140416

PATIENT
  Sex: Male
  Weight: 124.7 kg

DRUGS (2)
  1. BEXTRA [Suspect]
     Indication: PAIN IN EXTREMITY
     Route: 048
  2. BEXTRA [Suspect]
     Indication: JOINT INJURY

REACTIONS (4)
  - ANXIETY [None]
  - DEPRESSION [None]
  - FLASHBACK [None]
  - MYOCARDIAL INFARCTION [None]
